FAERS Safety Report 8170867-2 (Version None)
Quarter: 2012Q1

REPORT INFORMATION
  Report Type: 
  Country: None (occurrence: None)
  Receive Date: 20120228
  Receipt Date: 20120216
  Transmission Date: 20120608
  Serious: Yes (Hospitalization)
  Sender: FDA-Public Use
  Company Number: US-BAYER-2011-075456

PATIENT
  Age: 17 Year
  Sex: Female
  Weight: 77.098 kg

DRUGS (2)
  1. ANTIBIOTICS [Concomitant]
  2. YAZ [Suspect]
     Indication: CONTRACEPTION
     Dosage: UNK
     Dates: start: 20050101, end: 20060101

REACTIONS (8)
  - BACK PAIN [None]
  - COMPLICATION OF PREGNANCY [None]
  - CHOLECYSTITIS [None]
  - BILE DUCT STONE [None]
  - PREMATURE LABOUR [None]
  - ABDOMINAL PAIN UPPER [None]
  - PANCREATITIS [None]
  - CHOLELITHIASIS [None]
